FAERS Safety Report 6301633-8 (Version None)
Quarter: 2009Q3

REPORT INFORMATION
  Report Type: 
  Country: None (occurrence: None)
  Receive Date: 20090807
  Receipt Date: 20090728
  Transmission Date: 20100115
  Serious: Yes (Hospitalization, Disabling)
  Sender: FDA-Public Use
  Company Number: BE-ABBOTT-09P-013-0587828-00

PATIENT
  Sex: Male

DRUGS (6)
  1. LIPANTHYL TABLETS [Suspect]
     Indication: DRUG USE FOR UNKNOWN INDICATION
     Route: 048
     Dates: start: 20090501, end: 20090528
  2. CRESTOR [Interacting]
     Indication: DRUG USE FOR UNKNOWN INDICATION
     Route: 048
     Dates: start: 20081031
  3. PAROXETINE [Interacting]
     Indication: DEPRESSION
     Dosage: DALIY DOSE: 20 MILLIGRAMS
     Dates: start: 20040101
  4. PAROXETINE [Interacting]
     Indication: EPILEPSY
  5. PAROXETINE [Interacting]
     Indication: HYPERVENTILATION
  6. XANAX [Concomitant]
     Indication: DRUG USE FOR UNKNOWN INDICATION

REACTIONS (2)
  - CONVERSION DISORDER [None]
  - DRUG INTERACTION [None]
